FAERS Safety Report 8072604-9 (Version None)
Quarter: 2012Q1

REPORT INFORMATION
  Report Type: 
  Country: None (occurrence: None)
  Receive Date: 20120126
  Receipt Date: 20120117
  Transmission Date: 20120608
  Serious: Yes (Hospitalization)
  Sender: FDA-Public Use
  Company Number: DE-PFIZER INC-2011296004

PATIENT
  Age: 80 Year
  Sex: Female

DRUGS (9)
  1. CLARITHROMYCIN [Suspect]
     Indication: HELICOBACTER GASTRITIS
     Dosage: 1 DF, 2X/DAY
     Dates: start: 20111115, end: 20111121
  2. PANTOPRAZOLE [Concomitant]
     Dosage: 40 MG, UNK
  3. ASPIRIN [Concomitant]
     Dosage: 100 MG, UNK
  4. EBRANTIL [Concomitant]
     Dosage: 60 MG, DAILY
  5. PANTOPRAZOLE [Suspect]
     Indication: HELICOBACTER GASTRITIS
     Dosage: 1 DF, 2X/DAY
     Dates: start: 20111115, end: 20111121
  6. CARVEDILOL [Concomitant]
     Dosage: 50 MG, DAILY
  7. AMOXICILLIN [Suspect]
     Indication: HELICOBACTER GASTRITIS
     Dosage: 1 DF, 2X/DAY
     Dates: start: 20111115, end: 20111121
  8. DIOVAN HCT [Concomitant]
     Dosage: 320 MG, DAILY
  9. MOXONIDINE [Concomitant]
     Dosage: 0.6 MG, DAILY

REACTIONS (7)
  - DIARRHOEA [None]
  - LIVER FUNCTION TEST ABNORMAL [None]
  - RASH [None]
  - CHAPPED LIPS [None]
  - TONGUE COATED [None]
  - DRY MOUTH [None]
  - MUCOSAL INFLAMMATION [None]
